FAERS Safety Report 4319768-8 (Version None)
Quarter: 2004Q1

REPORT INFORMATION
  Report Type: 
  Country: None (occurrence: None)
  Receive Date: 20040319
  Receipt Date: 20040302
  Transmission Date: 20041129
  Serious: Yes (Death)
  Sender: FDA-Public Use
  Company Number: JP-GLAXOSMITHKLINE-B0325411A

PATIENT
  Age: 33 Year
  Sex: Male

DRUGS (4)
  1. ZIAGEN [Suspect]
     Indication: HIV INFECTION
     Dosage: 300MG TWICE PER DAY
     Route: 048
     Dates: start: 20040123, end: 20040210
  2. VIDEX EC [Suspect]
     Indication: HIV INFECTION
     Dosage: 200MG TWICE PER DAY
     Route: 048
     Dates: start: 20040123, end: 20040210
  3. STOCRIN [Suspect]
     Indication: HIV INFECTION
     Dosage: 200MG THREE TIMES PER DAY
     Route: 048
     Dates: start: 20040123, end: 20040210
  4. PREDNISOLONE [Concomitant]

REACTIONS (8)
  - BLOOD PRESSURE DECREASED [None]
  - DYSPNOEA [None]
  - DYSURIA [None]
  - PNEUMOCOCCAL SEPSIS [None]
  - PNEUMONIA PNEUMOCOCCAL [None]
  - PYREXIA [None]
  - RASH [None]
  - SEPTIC SHOCK [None]
